FAERS Safety Report 11026466 (Version 1)
Quarter: 2015Q2

REPORT INFORMATION
  Report Type: Spontaneous
  Country: US (occurrence: US)
  Receive Date: 20150414
  Receipt Date: 20150414
  Transmission Date: 20150821
  Serious: No
  Sender: FDA-Public Use
  Company Number: US-ASTRAZENECA-2015SE32419

PATIENT
  Sex: Male
  Weight: 79.4 kg

DRUGS (5)
  1. INVOKANA [Concomitant]
     Active Substance: CANAGLIFLOZIN
  2. BYDUREON [Suspect]
     Active Substance: EXENATIDE
     Indication: DIABETES MELLITUS
     Route: 058
  3. BLOOD PRESSURE MEDICATIONS [Concomitant]
     Active Substance: UNSPECIFIED INGREDIENT
  4. THYROID MEDICATIONS [Concomitant]
  5. HIGH CHOLESTEROL MEDICATIONS [Concomitant]

REACTIONS (2)
  - Injection site reaction [Unknown]
  - Adverse event [Unknown]
